FAERS Safety Report 15763956 (Version 1)
Quarter: 2018Q4

REPORT INFORMATION
  Report Type: Spontaneous
  Country: IT (occurrence: IT)
  Receive Date: 20181227
  Receipt Date: 20181227
  Transmission Date: 20190205
  Serious: Yes (Other)
  Sender: FDA-Public Use
  Company Number: IT-TEVA-2018-IT-991870

PATIENT
  Age: 84 Year
  Sex: Female

DRUGS (10)
  1. QUARK 10 MG COMPRESSE [Concomitant]
  2. VICTOZA [Suspect]
     Active Substance: LIRAGLUTIDE
     Indication: TYPE 2 DIABETES MELLITUS
     Dosage: 1 DOSAGE FORMS DAILY;
     Route: 058
     Dates: start: 20180101, end: 20180114
  3. SOLOSA [Suspect]
     Active Substance: GLIMEPIRIDE
     Indication: TYPE 2 DIABETES MELLITUS
     Dosage: 3 DOSAGE FORMS DAILY;
     Route: 048
     Dates: start: 20180101, end: 20180114
  4. METFORMIN [Suspect]
     Active Substance: METFORMIN HYDROCHLORIDE
     Indication: TYPE 2 DIABETES MELLITUS
     Dosage: 2 DOSAGE FORMS DAILY;
     Route: 048
     Dates: start: 20180101, end: 20180114
  5. CARDURA [Concomitant]
     Active Substance: DOXAZOSIN MESYLATE
  6. TRESIBA [Suspect]
     Active Substance: INSULIN DEGLUDEC
     Indication: TYPE 2 DIABETES MELLITUS
     Dosage: 20 IU (INTERNATIONAL UNIT) DAILY;
     Route: 058
     Dates: start: 20180101, end: 20180114
  7. TAREG 320 MG COMPRESSE RIVESTITE CON FILM [Concomitant]
  8. COUMADIN [Concomitant]
     Active Substance: WARFARIN SODIUM
  9. LEVEMIR [Suspect]
     Active Substance: INSULIN DETEMIR
     Indication: TYPE 2 DIABETES MELLITUS
     Dosage: 22 IU (INTERNATIONAL UNIT) DAILY;
     Route: 058
     Dates: start: 20180101, end: 20180114
  10. CARDIOASPIRIN 100 MG COMPRESSE GASTRORESISTENTI [Concomitant]
     Active Substance: ASPIRIN

REACTIONS (2)
  - Hypoglycaemia [Recovering/Resolving]
  - Sopor [Recovering/Resolving]

NARRATIVE: CASE EVENT DATE: 20180114
